FAERS Safety Report 8797048 (Version 1)
Quarter: 2012Q4

REPORT INFORMATION
  Report Type: 
  Country: GB (occurrence: GB)
  Receive Date: 20120919
  Receipt Date: 20120919
  Transmission Date: 20130627
  Serious: Yes (Other)
  Sender: FDA-Public Use
  Company Number: GB-GLAXOSMITHKLINE-B0712327A

PATIENT
  Sex: Female

DRUGS (5)
  1. LAMICTAL [Suspect]
     Indication: TEMPORAL LOBE EPILEPSY
     Dosage: 450MG Twice per day
     Route: 048
     Dates: start: 201102, end: 20110406
  2. LAMICTAL [Suspect]
     Indication: TEMPORAL LOBE EPILEPSY
     Dosage: 450MG Twice per day
     Route: 048
     Dates: start: 20110406
  3. LAMICTAL [Suspect]
     Indication: TEMPORAL LOBE EPILEPSY
     Dosage: 450MG Twice per day
     Route: 048
     Dates: start: 201104
  4. KEPPRA [Concomitant]
     Dosage: 250MG per day
  5. HRT [Concomitant]

REACTIONS (11)
  - Petit mal epilepsy [Unknown]
  - Slow response to stimuli [Not Recovered/Not Resolved]
  - Epilepsy [Not Recovered/Not Resolved]
  - Slow response to stimuli [Unknown]
  - Vomiting [Not Recovered/Not Resolved]
  - Middle insomnia [Not Recovered/Not Resolved]
  - Dizziness [Not Recovered/Not Resolved]
  - Balance disorder [Not Recovered/Not Resolved]
  - Vertigo [Unknown]
  - Sleep disorder [Unknown]
  - Nausea [Not Recovered/Not Resolved]
